FAERS Safety Report 7244402-7 (Version None)
Quarter: 2011Q1

REPORT INFORMATION
  Report Type: 
  Country: None (occurrence: None)
  Receive Date: 20110119
  Receipt Date: 20110119
  Transmission Date: 20110831
  Serious: Yes (Other)
  Sender: FDA-Public Use
  Company Number: None

PATIENT
  Age: 62 Year
  Sex: Female
  Weight: 49.8957 kg

DRUGS (1)
  1. LEVOXYL [Suspect]
     Indication: HYPOTHYROIDISM
     Dosage: 75 MCG/100 MCG 5 X/WEEK / 2X/WEEK PO
     Route: 048

REACTIONS (7)
  - PARAESTHESIA [None]
  - SLEEP DISORDER [None]
  - SKIN BURNING SENSATION [None]
  - PAIN OF SKIN [None]
  - DRUG HYPERSENSITIVITY [None]
  - PRODUCT FORMULATION ISSUE [None]
  - ACTIVITIES OF DAILY LIVING IMPAIRED [None]
